FAERS Safety Report 17452100 (Version 1)
Quarter: 2020Q1

REPORT INFORMATION
  Report Type: Spontaneous
  Country: GB (occurrence: GB)
  Receive Date: 20200224
  Receipt Date: 20200224
  Transmission Date: 20200409
  Serious: Yes (Hospitalization)
  Sender: FDA-Public Use
  Company Number: GB-MYLANLABS-2020M1018569

PATIENT
  Age: 88 Year
  Sex: Female

DRUGS (15)
  1. NAPROXEN. [Suspect]
     Active Substance: NAPROXEN
     Indication: BACK PAIN
     Dosage: 1000 MILLIGRAM, QD (ONLY ONE DOSE TAKEN PRIOR TO ADMISSION)
     Route: 048
     Dates: start: 20191104
  2. MACROGOL [Concomitant]
     Active Substance: POLYETHYLENE GLYCOLS
     Dosage: 2 DOSAGE FORM, PRN (SACHETS)
     Route: 048
     Dates: start: 20191028
  3. BUPRENORPHINE. [Concomitant]
     Active Substance: BUPRENORPHINE
     Dosage: 5 MICROGRAM, QH
     Route: 062
     Dates: start: 20191029, end: 20191029
  4. CYCLIZINE [Concomitant]
     Active Substance: CYCLIZINE
     Dosage: 50 MILLIGRAM, PRN (TDS)
     Route: 048
     Dates: start: 20191101
  5. CO-DYDRAMOL [Concomitant]
     Active Substance: ACETAMINOPHEN\DIHYDROCODEINE
     Dosage: 1-2 QDS, 10MG/500MG
     Route: 048
     Dates: start: 20191023, end: 20191024
  6. OMEPRAZOLE. [Concomitant]
     Active Substance: OMEPRAZOLE
     Dosage: OM, ONLY ONE DOSE TAKEN PRIOR TO ADMISSION
     Route: 048
     Dates: start: 20191104
  7. FUROSEMIDE. [Concomitant]
     Active Substance: FUROSEMIDE
     Dosage: 20 MILLIGRAM, QD (ON MORNING)
     Route: 048
  8. AMLODIPINE [Concomitant]
     Active Substance: AMLODIPINE BESYLATE
     Dosage: 5 MILLIGRAM, QD (ON MORNING)
     Route: 048
  9. DIAZEPAM. [Concomitant]
     Active Substance: DIAZEPAM
     Dosage: 6 MILLIGRAM, QD
     Route: 048
     Dates: start: 20191028, end: 20191029
  10. CYCLIZINE [Concomitant]
     Active Substance: CYCLIZINE
     Dosage: 30 MILLIGRAM, PRN (THREE TIMES A DAY)
     Route: 048
     Dates: start: 20191101
  11. ALENDRONIC ACID [Concomitant]
     Active Substance: ALENDRONIC ACID
     Dosage: 70 MILLIGRAM, QW
     Route: 048
  12. COLECALCIFEROL [Concomitant]
     Active Substance: CHOLECALCIFEROL
     Dosage: 4000 INTERNATIONAL UNIT, QD (ON MORNING)
     Route: 048
  13. ACETYLSALICYLIC ACID [Concomitant]
     Active Substance: ASPIRIN
     Dosage: 75 MILLIGRAM, QD (ON MORNING)
     Route: 048
  14. BUPRENORPHINE. [Concomitant]
     Active Substance: BUPRENORPHINE
     Dosage: 5 MICROGRAM, Q3D
     Route: 062
     Dates: start: 20191029, end: 20191029
  15. SIMVASTATIN. [Concomitant]
     Active Substance: SIMVASTATIN
     Dosage: 20 MILLIGRAM, QD (ON NIGHT)
     Route: 048

REACTIONS (2)
  - Drug ineffective [Unknown]
  - Duodenitis [Unknown]
